FAERS Safety Report 8048769-1 (Version None)
Quarter: 2012Q1

REPORT INFORMATION
  Report Type: 
  Country: None (occurrence: None)
  Receive Date: 20120117
  Receipt Date: 20120112
  Transmission Date: 20120608
  Serious: Yes (Other)
  Sender: FDA-Public Use
  Company Number: US-ROXANE LABORATORIES, INC.-2012-RO-00459RO

PATIENT
  Age: 43 Year
  Sex: Male

DRUGS (23)
  1. FLUCONAZOLE [Suspect]
     Indication: PYREXIA
  2. ZOLPIDEM [Suspect]
  3. IPRATROPIUM BROMIDE AND ALBUTEROL SULFATE [Suspect]
  4. LORAZEPAM [Suspect]
     Indication: ANXIETY DISORDER
  5. OLANZAPINE [Suspect]
     Indication: ANXIETY DISORDER
     Dosage: 1.25 MG
     Dates: start: 20061011, end: 20061015
  6. POTASSIUM CHLORIDE [Suspect]
  7. FLUTICASONE PROPIONATE [Suspect]
  8. ACYCLOVIR [Suspect]
     Indication: PYREXIA
  9. FLUTICASONE PROPIONATE/SALMETEROL [Suspect]
  10. OXYCODONE HCL [Suspect]
  11. ALPRAZOLAM [Suspect]
     Indication: ANXIETY DISORDER
     Dosage: 1 MG
  12. VANCOMYCIN [Suspect]
     Indication: PYREXIA
  13. ESOMEPRAZOLE SODIUM [Suspect]
  14. FLUVOXAMINE MALEATE [Suspect]
     Indication: ANXIETY DISORDER
     Dosage: 100 MG
  15. ARSENIC TRIOXIDE [Suspect]
     Indication: ACUTE PROMYELOCYTIC LEUKAEMIA
     Route: 042
     Dates: start: 20060929
  16. DOCUSATE [Suspect]
  17. OLANZAPINE [Suspect]
     Dosage: 5 MG
     Dates: start: 20061018
  18. AZTREONAM [Suspect]
     Indication: PYREXIA
  19. LINEZOLID [Suspect]
     Indication: PYREXIA
  20. VERAPAMIL [Suspect]
  21. CALCIUM ACETATE [Suspect]
  22. OLANZAPINE [Suspect]
     Dosage: 2.5 MG
     Dates: start: 20061015, end: 20061018
  23. ALLOPURINOL [Suspect]

REACTIONS (7)
  - CHILLS [None]
  - ELECTROCARDIOGRAM QT PROLONGED [None]
  - ANXIETY [None]
  - PYREXIA [None]
  - HYPERHIDROSIS [None]
  - TREMOR [None]
  - DRUG WITHDRAWAL SYNDROME [None]
